FAERS Safety Report 8379290-9 (Version None)
Quarter: 2012Q1

REPORT INFORMATION
  Report Type: 
  Country: None (occurrence: None)
  Receive Date: 20120323
  Receipt Date: 20110418
  Transmission Date: 20120608
  Serious: Yes (Other)
  Sender: FDA-Public Use
  Company Number: 163-21880-11042425

PATIENT
  Age: 80 Year
  Sex: Female

DRUGS (14)
  1. DEXAMETHASONE [Concomitant]
  2. FERROUS SULFATE TAB [Concomitant]
  3. HYDROCHLOROTHIAZIDE [Concomitant]
  4. CALCIUM CARBONATE [Concomitant]
  5. VITAMIN B12 [Concomitant]
  6. XANAX [Concomitant]
  7. ZOLOFT [Concomitant]
  8. MAGNESIUM [Concomitant]
  9. NEURONTIN [Concomitant]
  10. NEXIUM [Concomitant]
  11. REVLIMID [Suspect]
     Indication: MULTIPLE MYELOMA
     Dosage: 10-5 MG, DAILY, PO; 5 MG, 1 IN 1 D, PO
     Route: 048
     Dates: start: 20100401, end: 20100101
  12. REVLIMID [Suspect]
     Indication: MULTIPLE MYELOMA
     Dosage: 10-5 MG, DAILY, PO; 5 MG, 1 IN 1 D, PO
     Route: 048
     Dates: start: 20101001
  13. HYDROCODONE [Concomitant]
  14. POTASSIUM CHLORIDE [Concomitant]

REACTIONS (1)
  - FULL BLOOD COUNT DECREASED [None]
